FAERS Safety Report 16360094 (Version 2)
Quarter: 2019Q3

REPORT INFORMATION
  Report Type: Report from Study
  Country: None (occurrence: BR)
  Receive Date: 20190528
  Receipt Date: 20190826
  Transmission Date: 20191004
  Serious: Yes (Other)
  Sender: FDA-Public Use
  Company Number: BR-ABBVIE-19K-020-2797516-00

PATIENT
  Sex: Female
  Weight: 85 kg

DRUGS (3)
  1. METHOTREXATE. [Concomitant]
     Active Substance: METHOTREXATE
     Indication: UVEITIS
     Route: 048
     Dates: start: 201811
  2. PREDNISONE. [Concomitant]
     Active Substance: PREDNISONE
     Indication: UVEITIS
     Route: 048
     Dates: start: 201811
  3. HUMIRA [Suspect]
     Active Substance: ADALIMUMAB
     Indication: UVEITIS
     Route: 058
     Dates: start: 20190120, end: 201904

REACTIONS (2)
  - Uveitis [Unknown]
  - Blindness [Unknown]

NARRATIVE: CASE EVENT DATE: 2019
